FAERS Safety Report 9512290 (Version 1)
Quarter: 2013Q3

REPORT INFORMATION
  Report Type: Spontaneous
  Country: US (occurrence: US)
  Receive Date: 20130910
  Receipt Date: 20130910
  Transmission Date: 20140515
  Serious: No
  Sender: FDA-Public Use
  Company Number: -SAAVPROD-BMS16014169

PATIENT
  Sex: Male

DRUGS (1)
  1. AVAPRO TABS 300 MG [Suspect]
     Dates: start: 20110720

REACTIONS (2)
  - Dysgeusia [Unknown]
  - Swelling [Unknown]
